FAERS Safety Report 13652623 (Version 1)
Quarter: 2017Q2

REPORT INFORMATION
  Report Type: Spontaneous
  Country: US (occurrence: US)
  Receive Date: 20170614
  Receipt Date: 20170614
  Transmission Date: 20170830
  Serious: No
  Sender: FDA-Public Use
  Company Number: US-ROCHE-1379607

PATIENT
  Sex: Female

DRUGS (6)
  1. ALEVE [Concomitant]
     Active Substance: NAPROXEN SODIUM
     Indication: ARTHRITIS
     Route: 065
  2. CALTRATE [Concomitant]
     Active Substance: CALCIUM CARBONATE
     Route: 065
  3. CHONDROITIN [Concomitant]
     Active Substance: CHONDROITIN
     Indication: ARTHRITIS
  4. CHONDROITIN [Concomitant]
     Active Substance: CHONDROITIN
     Indication: ARTHRALGIA
     Route: 065
  5. XELODA [Suspect]
     Active Substance: CAPECITABINE
     Indication: BREAST CANCER METASTATIC
     Dosage: 2 WEEKS ON AND 1 WEEK OFF
     Route: 048
     Dates: start: 2014
  6. LEXAPRO [Concomitant]
     Active Substance: ESCITALOPRAM OXALATE
     Indication: DEPRESSION
     Route: 065

REACTIONS (5)
  - Dizziness [Unknown]
  - Nausea [Unknown]
  - Blood pressure systolic increased [Unknown]
  - Asthenia [Unknown]
  - Dyspnoea [Unknown]
